FAERS Safety Report 23638363 (Version 1)
Quarter: 2024Q1

REPORT INFORMATION
  Report Type: Spontaneous
  Country: JP (occurrence: JP)
  Receive Date: 20240315
  Receipt Date: 20240315
  Transmission Date: 20240410
  Serious: Yes (Death, Other)
  Sender: FDA-Public Use
  Company Number: JP-MPKK-JPN202400231_P_1

PATIENT
  Age: 50 Year
  Sex: Male

DRUGS (1)
  1. NORSPAN [Suspect]
     Active Substance: BUPRENORPHINE
     Indication: Pain
     Dosage: UNK
     Route: 062

REACTIONS (4)
  - Death [Fatal]
  - Chest discomfort [Unknown]
  - Coronary bypass stenosis [Unknown]
  - General physical health deterioration [Unknown]
